FAERS Safety Report 15862889 (Version 1)
Quarter: 2019Q1

REPORT INFORMATION
  Report Type: Report from Study
  Country: US (occurrence: US)
  Receive Date: 20190124
  Receipt Date: 20190124
  Transmission Date: 20190417
  Serious: Yes (Hospitalization)
  Sender: FDA-Public Use
  Company Number: US-AMREGENT-20190075

PATIENT
  Age: 55 Year
  Sex: Male
  Weight: 64.9 kg

DRUGS (1)
  1. OXALIPLATIN INJECTION, USP (0517-1910-01) [Suspect]
     Active Substance: OXALIPLATIN
     Dosage: VARIOUS DOSING (FOLFOX), Q2W
     Route: 042
     Dates: start: 20181022

REACTIONS (2)
  - Anaemia [Recovering/Resolving]
  - Product use in unapproved indication [Unknown]

NARRATIVE: CASE EVENT DATE: 20181022
